FAERS Safety Report 21659025 (Version 1)
Quarter: 2022Q4

REPORT INFORMATION
  Report Type: Spontaneous
  Country: BR (occurrence: BR)
  Receive Date: 20221129
  Receipt Date: 20221129
  Transmission Date: 20230113
  Serious: Yes (Other)
  Sender: FDA-Public Use
  Company Number: BR-002147023-NVSC2022BR261665

PATIENT

DRUGS (1)
  1. RUXOLITINIB [Suspect]
     Active Substance: RUXOLITINIB
     Indication: Myelofibrosis
     Dosage: 40 MG QD (PER DAY FOR ABOUT TWO MONTHS)
     Route: 065

REACTIONS (4)
  - Abdominal pain [Unknown]
  - Inappropriate schedule of product administration [Unknown]
  - Platelet count increased [Unknown]
  - Blindness [Unknown]
